APPROVED DRUG PRODUCT: CLONAZEPAM
Active Ingredient: CLONAZEPAM
Strength: 2MG
Dosage Form/Route: TABLET;ORAL
Application: A074940 | Product #003
Applicant: PHARMOBEDIENT CONSULTING LLC
Approved: Oct 30, 1997 | RLD: No | RS: No | Type: DISCN